FAERS Safety Report 6318183-5 (Version None)
Quarter: 2009Q3

REPORT INFORMATION
  Report Type: 
  Country: None (occurrence: None)
  Receive Date: 20090821
  Receipt Date: 20090813
  Transmission Date: 20100115
  Serious: Yes (Other)
  Sender: FDA-Public Use
  Company Number: A0803319A

PATIENT
  Age: 17 Year
  Sex: Male
  Weight: 113.6 kg

DRUGS (3)
  1. WELLBUTRIN [Suspect]
     Indication: FEELING ABNORMAL
     Route: 048
     Dates: start: 20051201, end: 20060101
  2. ADDERALL XR 5 [Suspect]
     Indication: ATTENTION DEFICIT/HYPERACTIVITY DISORDER
     Dosage: 40MG PER DAY
     Route: 048
     Dates: start: 20000101, end: 20050101
  3. TRILEPTAL [Suspect]
     Indication: FEELING ABNORMAL
     Route: 048
     Dates: start: 20051201, end: 20060101

REACTIONS (11)
  - BELLIGERENCE [None]
  - DISTURBANCE IN ATTENTION [None]
  - DRUG INTERACTION [None]
  - EMOTIONAL DISTRESS [None]
  - FEELING ABNORMAL [None]
  - INSOMNIA [None]
  - INTENTIONAL SELF-INJURY [None]
  - LOSS OF EMPLOYMENT [None]
  - NEGATIVISM [None]
  - OVERDOSE [None]
  - TREATMENT NONCOMPLIANCE [None]
